FAERS Safety Report 6918074-2 (Version None)
Quarter: 2010Q3

REPORT INFORMATION
  Report Type: 
  Country: None (occurrence: None)
  Receive Date: 20100806
  Receipt Date: 20100727
  Transmission Date: 20110219
  Serious: Yes (Other)
  Sender: FDA-Public Use
  Company Number: 7011319

PATIENT
  Age: 41 Year
  Sex: Female
  Weight: 65 kg

DRUGS (3)
  1. REBIF [Suspect]
     Indication: MULTIPLE SCLEROSIS
     Dosage: 22 MCG 22 MCG
     Dates: end: 20100601
  2. REBIF [Suspect]
     Indication: MULTIPLE SCLEROSIS
     Dosage: 22 MCG 22 MCG
     Dates: start: 20100715
  3. ESCITALOPRAM OXALATE [Concomitant]

REACTIONS (2)
  - OEDEMA PERIPHERAL [None]
  - WEIGHT INCREASED [None]
